FAERS Safety Report 25084548 (Version 2)
Quarter: 2025Q1

REPORT INFORMATION
  Report Type: Spontaneous
  Country: US (occurrence: US)
  Receive Date: 20250317
  Receipt Date: 20250321
  Transmission Date: 20250408
  Serious: Yes (Hospitalization, Other)
  Sender: PFIZER
  Company Number: US-AstraZeneca-2024A149947

PATIENT
  Sex: Male

DRUGS (13)
  1. VYNDAMAX [Interacting]
     Active Substance: TAFAMIDIS
  2. VYNDAMAX [Interacting]
     Active Substance: TAFAMIDIS
  3. ELIQUIS [Interacting]
     Active Substance: APIXABAN
  4. ELIQUIS [Interacting]
     Active Substance: APIXABAN
     Route: 048
     Dates: start: 202004, end: 20240805
  5. ROSUVASTATIN CALCIUM [Interacting]
     Active Substance: ROSUVASTATIN CALCIUM
     Route: 048
  6. ROSUVASTATIN CALCIUM [Interacting]
     Active Substance: ROSUVASTATIN CALCIUM
     Route: 048
  7. SPIRONOLACTONE [Concomitant]
     Active Substance: SPIRONOLACTONE
  8. ROSUVASTATIN [Concomitant]
     Active Substance: ROSUVASTATIN
  9. EZETIMIBE [Concomitant]
     Active Substance: EZETIMIBE
  10. FUROSEMIDE [Concomitant]
     Active Substance: FUROSEMIDE
  11. FERROUS SULFATE [Concomitant]
     Active Substance: FERROUS SULFATE
  12. JARDIANCE [Concomitant]
     Active Substance: EMPAGLIFLOZIN
  13. CALCITRIOL [Concomitant]
     Active Substance: CALCITRIOL

REACTIONS (4)
  - Anaemia [Recovered/Resolved]
  - Influenza [Recovered/Resolved]
  - Asthenia [Unknown]
  - Drug interaction [Unknown]

NARRATIVE: CASE EVENT DATE: 20240208
